FAERS Safety Report 19285585 (Version 1)
Quarter: 2021Q2

REPORT INFORMATION
  Report Type: Spontaneous
  Country: CN (occurrence: CN)
  Receive Date: 20210521
  Receipt Date: 20210521
  Transmission Date: 20210717
  Serious: Yes (Other)
  Sender: FDA-Public Use
  Company Number: CN-PFIZER INC-2021517689

PATIENT
  Age: 62 Year
  Sex: Female
  Weight: 40 kg

DRUGS (1)
  1. TYGACIL [Suspect]
     Active Substance: TIGECYCLINE
     Indication: SYMPTOMATIC TREATMENT
     Dosage: 100 MG, 2X/DAY
     Route: 041
     Dates: start: 20210315, end: 20210328

REACTIONS (2)
  - Coagulopathy [Recovering/Resolving]
  - Hepatic function abnormal [Recovering/Resolving]

NARRATIVE: CASE EVENT DATE: 20210319
